FAERS Safety Report 11596516 (Version 1)
Quarter: 2015Q4

REPORT INFORMATION
  Report Type: Spontaneous
  Country: US (occurrence: None)
  Receive Date: 20151005
  Receipt Date: 20151005
  Transmission Date: 20160304
  Serious: No
  Sender: FDA-Public Use
  Company Number: None

PATIENT
  Age: 55 Year
  Sex: Female
  Weight: 86.18 kg

DRUGS (3)
  1. BABY ASPIRIN [Concomitant]
     Active Substance: ASPIRIN
  2. ARESTIN [Suspect]
     Active Substance: MINOCYCLINE HYDROCHLORIDE
     Indication: ORAL BACTERIAL INFECTION
     Dosage: ONE DOSE BETWEEN TEETH
  3. NORVASC [Concomitant]
     Active Substance: AMLODIPINE BESYLATE

REACTIONS (7)
  - Abdominal discomfort [None]
  - Rash pruritic [None]
  - Diarrhoea [None]
  - Fatigue [None]
  - Malaise [None]
  - Abdominal pain upper [None]
  - Influenza like illness [None]

NARRATIVE: CASE EVENT DATE: 20150928
